FAERS Safety Report 6121843-2 (Version None)
Quarter: 2009Q1

REPORT INFORMATION
  Report Type: 
  Country: None (occurrence: None)
  Receive Date: 20090313
  Receipt Date: 20090227
  Transmission Date: 20090719
  Serious: Yes (Other)
  Sender: FDA-Public Use
  Company Number: 2009S1003531

PATIENT
  Age: 68 Year
  Sex: Female

DRUGS (10)
  1. BICOR (BISOPROLOL) (5 MG) [Suspect]
     Indication: CARDIOMYOPATHY
     Dosage: 5 MG; DAILY; ORAL
     Route: 048
     Dates: start: 20090127
  2. ZESTRIL [Concomitant]
  3. SOMAC [Concomitant]
  4. PROPYL-THIOURACIL [Concomitant]
  5. CARTIA XT [Concomitant]
  6. CALTRATE [Concomitant]
  7. FISH OIL [Concomitant]
  8. GLUCOSAMINE [Concomitant]
  9. VITAMIN B COMPLEX CAP [Concomitant]
  10. ST. JOHN'S WORT [Concomitant]

REACTIONS (3)
  - ABNORMAL DREAMS [None]
  - COUGH [None]
  - LOSS OF CONSCIOUSNESS [None]
